FAERS Safety Report 12629223 (Version 1)
Quarter: 2016Q3

REPORT INFORMATION
  Report Type: Spontaneous
  Country: SI (occurrence: SI)
  Receive Date: 20160808
  Receipt Date: 20160808
  Transmission Date: 20161109
  Serious: Yes (Hospitalization)
  Sender: FDA-Public Use
  Company Number: PHHY2016SI108080

PATIENT
  Sex: Male

DRUGS (1)
  1. CO-DIOVAN [Suspect]
     Active Substance: HYDROCHLOROTHIAZIDE\VALSARTAN
     Indication: BLOOD PRESSURE INCREASED
     Dosage: (320 MG VALSARTAN, 12.5 MG HYDROCHLOROTHIAZIDE)
     Route: 065

REACTIONS (5)
  - Spinal pain [Unknown]
  - Acute myeloid leukaemia [Unknown]
  - Bone marrow failure [Unknown]
  - Abdominal pain [Unknown]
  - Thrombocytopenia [Unknown]
